FAERS Safety Report 9013967 (Version 2)
Quarter: 2013Q3

REPORT INFORMATION
  Report Type: Spontaneous
  Country: US (occurrence: None)
  Receive Date: 20121231
  Receipt Date: 20130821
  Transmission Date: 20140515
  Serious: Yes (Death, Hospitalization)
  Sender: FDA-Public Use
  Company Number: 2012AP004355

PATIENT
  Age: 79 Year
  Sex: Male

DRUGS (7)
  1. CLOPIDOGREL [Suspect]
     Indication: ATRIAL FIBRILLATION
  2. CLOPIDOGREL [Suspect]
     Indication: CORONARY ARTERY DISEASE
  3. SOTALOL [Suspect]
     Indication: PRODUCT USED FOR UNKNOWN INDICATION
  4. DABIGATRAN ETEXILATE [Suspect]
     Indication: PRODUCT USED FOR UNKNOWN INDICATION
  5. DABIGATRAN ETEXILATE [Suspect]
     Indication: CORONARY ARTERY DISEASE
  6. ASPIRIN [Suspect]
     Indication: CORONARY ARTERY DISEASE
  7. ASPIRIN [Suspect]
     Indication: CORONARY ARTERY DISEASE

REACTIONS (8)
  - Epistaxis [None]
  - Melaena [None]
  - Chest pain [None]
  - Bradycardia [None]
  - Cardiac arrest [None]
  - Pulseless electrical activity [None]
  - Haemoglobin decreased [None]
  - Haematocrit decreased [None]
